FAERS Safety Report 5312553-X (Version None)
Quarter: 2007Q2

REPORT INFORMATION
  Report Type: 
  Country: None (occurrence: None)
  Receive Date: 20070430
  Receipt Date: 20070112
  Transmission Date: 20071010
  Serious: No
  Sender: FDA-Public Use
  Company Number: 2007UW00803

PATIENT
  Age: 78 Year
  Sex: Female

DRUGS (5)
  1. NEXIUM [Suspect]
     Indication: HIATUS HERNIA
     Route: 048
  2. NEXIUM [Suspect]
     Indication: DYSPEPSIA
     Route: 048
  3. MAALOX FAST BLOCKER [Concomitant]
  4. TUMS [Concomitant]
  5. DONNATAL [Concomitant]

REACTIONS (2)
  - ARTHRITIS [None]
  - MUSCULOSKELETAL DISCOMFORT [None]
